FAERS Safety Report 25373051 (Version 1)
Quarter: 2025Q2

REPORT INFORMATION
  Report Type: Spontaneous
  Country: DE (occurrence: DE)
  Receive Date: 20250529
  Receipt Date: 20250529
  Transmission Date: 20250716
  Serious: Yes (Other)
  Sender: DAIICHI
  Company Number: DE-DSJP-DS-2025-143367-DE

PATIENT
  Sex: Female

DRUGS (1)
  1. EDOXABAN TOSYLATE [Suspect]
     Active Substance: EDOXABAN TOSYLATE
     Indication: Atrial fibrillation
     Dosage: 1 DOSAGE FORM, QD (60 MG, 1 TABLET DAILY)
     Route: 065
     Dates: start: 2017

REACTIONS (5)
  - Eczema [Not Recovered/Not Resolved]
  - Gastritis [Not Recovered/Not Resolved]
  - Emphysema [Not Recovered/Not Resolved]
  - Adrenal disorder [Not Recovered/Not Resolved]
  - Reaction to excipient [Unknown]

NARRATIVE: CASE EVENT DATE: 20170101
